FAERS Safety Report 4556201-5 (Version None)
Quarter: 2005Q1

REPORT INFORMATION
  Report Type: 
  Country: None (occurrence: None)
  Receive Date: 20050103
  Receipt Date: 20040929
  Transmission Date: 20050727
  Serious: No
  Sender: FDA-Public Use
  Company Number: 2004UW16861

PATIENT
  Age: 47 Year
  Sex: Female
  Weight: 85.7298 kg

DRUGS (4)
  1. CRESTOR [Suspect]
     Indication: BLOOD CHOLESTEROL INCREASED
     Dosage: 10 MG QD PO
     Route: 048
     Dates: start: 20040525
  2. HYDROCHLOROTHIAZIDE [Concomitant]
  3. FLUOXETINE HCL [Concomitant]
  4. CLIMARA ^SCHERING^ [Concomitant]

REACTIONS (4)
  - HEPATIC ENZYME INCREASED [None]
  - MUSCLE SPASMS [None]
  - MUSCULAR WEAKNESS [None]
  - MYALGIA [None]
